FAERS Safety Report 11170102 (Version 1)
Quarter: 2015Q2

REPORT INFORMATION
  Report Type: Spontaneous
  Country: US (occurrence: US)
  Receive Date: 20150608
  Receipt Date: 20150608
  Transmission Date: 20150821
  Serious: Yes (Hospitalization)
  Sender: FDA-Public Use
  Company Number: US-AUROBINDO-AUR-APL-2015-04873

PATIENT
  Sex: Male

DRUGS (6)
  1. AMLODIPINE [Suspect]
     Active Substance: AMLODIPINE BESYLATE
     Indication: HYPERTENSION
     Dosage: 5 MG, ONCE A DAY
     Route: 065
     Dates: start: 201501
  2. TAMSULOSIN HCL [Suspect]
     Active Substance: TAMSULOSIN
     Indication: PRODUCT USED FOR UNKNOWN INDICATION
     Dosage: 0.4 MG, ONCE A DAY
     Route: 065
  3. LEVOTHYROXINE [Suspect]
     Active Substance: LEVOTHYROXINE
     Indication: PRODUCT USED FOR UNKNOWN INDICATION
     Dosage: 25 MG, ONCE A DAY
     Route: 065
  4. FISH OIL [Suspect]
     Active Substance: FISH OIL
     Indication: PRODUCT USED FOR UNKNOWN INDICATION
     Dosage: UNK
     Route: 065
  5. SUTENT [Suspect]
     Active Substance: SUNITINIB MALATE
     Indication: PRODUCT USED FOR UNKNOWN INDICATION
     Dosage: 50 MG, ONCE A DAY
     Route: 065
     Dates: start: 201409
  6. METOPROLOL TARTRATE TABLETS USP 50 MG [Suspect]
     Active Substance: METOPROLOL TARTRATE
     Indication: HYPERTENSION
     Dosage: 1 DF, TWO TIMES A DAY
     Route: 065
     Dates: start: 201501

REACTIONS (18)
  - Dry skin [Not Recovered/Not Resolved]
  - Dysgeusia [Unknown]
  - Erythema [Unknown]
  - Epistaxis [Unknown]
  - Dizziness [Not Recovered/Not Resolved]
  - Flatulence [Unknown]
  - Oral pain [Unknown]
  - Rash macular [Unknown]
  - Nasopharyngitis [Unknown]
  - Madarosis [Unknown]
  - Vision blurred [Not Recovered/Not Resolved]
  - Skin discolouration [Unknown]
  - Skin exfoliation [Unknown]
  - Swelling face [Unknown]
  - Hair colour changes [Unknown]
  - Blood pressure increased [Recovered/Resolved]
  - Skin papilloma [Unknown]
  - Palmar-plantar erythrodysaesthesia syndrome [Unknown]
